FAERS Safety Report 7438162-4 (Version None)
Quarter: 2011Q2

REPORT INFORMATION
  Report Type: 
  Country: None (occurrence: None)
  Receive Date: 20110421
  Receipt Date: 20110421
  Transmission Date: 20111010
  Serious: Yes (Other)
  Sender: FDA-Public Use
  Company Number: None

PATIENT
  Age: 76 Year
  Sex: Female
  Weight: 75.7507 kg

DRUGS (1)
  1. DONEPEZIL [Suspect]
     Indication: AMNESIA
     Dosage: 10 MG 1 TAB DAILY P.O.
     Route: 048

REACTIONS (2)
  - VOMITING [None]
  - NAUSEA [None]
